FAERS Safety Report 24004930 (Version 1)
Quarter: 2024Q2

REPORT INFORMATION
  Report Type: Spontaneous
  Country: US (occurrence: None)
  Receive Date: 20240621
  Receipt Date: 20240621
  Transmission Date: 20240717
  Serious: Yes (Hospitalization)
  Sender: FDA-Public Use
  Company Number: None

PATIENT
  Sex: Male

DRUGS (11)
  1. LENALIDOMIDE [Suspect]
     Active Substance: LENALIDOMIDE
     Indication: Plasma cell myeloma in remission
     Dosage: OTHER QUANTITY : TAKE 1 CAPSULE;?FREQUENCY : EVERY OTHER DAY;?
     Route: 048
     Dates: start: 20230913
  2. ACETAMINOPHN [Concomitant]
  3. ALPHA LIPOIC [Concomitant]
  4. ASPIRIN [Concomitant]
     Active Substance: ASPIRIN
  5. ATORVASTATIN [Concomitant]
     Active Substance: ATORVASTATIN
  6. BASAGLAR [Concomitant]
     Active Substance: INSULIN GLARGINE
  7. CALCITRIOL [Concomitant]
     Active Substance: CALCITRIOL
  8. CALCIUM GARB CHW [Concomitant]
  9. CLOTRIM/BETA CRE DIPROP [Concomitant]
  10. CYCLOBENZAPRINE [Concomitant]
     Active Substance: CYCLOBENZAPRINE
  11. DARZALEX SOL FASPRO [Concomitant]

REACTIONS (1)
  - Pneumonia [None]
